FAERS Safety Report 8521993-7 (Version None)
Quarter: 2012Q3

REPORT INFORMATION
  Report Type: 
  Country: None (occurrence: None)
  Receive Date: 20120719
  Receipt Date: 20120705
  Transmission Date: 20120928
  Serious: Yes (Hospitalization)
  Sender: FDA-Public Use
  Company Number: US-ARROW-2012-11925

PATIENT
  Age: 41 Year
  Sex: Male
  Weight: 141.3 kg

DRUGS (1)
  1. LEVETIRACETAM [Suspect]
     Indication: OVERDOSE
     Dosage: 63000 MG, SINGLE
     Route: 065

REACTIONS (3)
  - ATAXIA [None]
  - INTENTIONAL OVERDOSE [None]
  - VISION BLURRED [None]
